FAERS Safety Report 7263938-6 (Version None)
Quarter: 2011Q1

REPORT INFORMATION
  Report Type: 
  Country: None (occurrence: None)
  Receive Date: 20110130
  Receipt Date: 20101206
  Transmission Date: 20110831
  Serious: No
  Sender: FDA-Public Use
  Company Number: US-ABBOTT-10P-163-0682519-00

PATIENT
  Sex: Female
  Weight: 66.284 kg

DRUGS (6)
  1. LISINOPRIL [Concomitant]
     Indication: HYPERTENSION
  2. HUMIRA [Suspect]
     Indication: RHEUMATOID ARTHRITIS
     Route: 058
     Dates: start: 20100101, end: 20101001
  3. METOPROLOL [Concomitant]
     Indication: HYPERTENSION
  4. HUMIRA [Suspect]
     Route: 058
     Dates: start: 20101031
  5. METHOTREXATE [Concomitant]
     Indication: PRODUCT USED FOR UNKNOWN INDICATION
  6. SYNTHROID [Concomitant]
     Indication: PRODUCT USED FOR UNKNOWN INDICATION

REACTIONS (6)
  - INJECTION SITE PAIN [None]
  - DEVICE MALFUNCTION [None]
  - DRUG INEFFECTIVE [None]
  - SINUSITIS [None]
  - SWELLING [None]
  - ARTHRALGIA [None]
